FAERS Safety Report 23535083 (Version 2)
Quarter: 2024Q2

REPORT INFORMATION
  Report Type: Spontaneous
  Country: US (occurrence: US)
  Receive Date: 20240217
  Receipt Date: 20240528
  Transmission Date: 20240715
  Serious: Yes (Other)
  Sender: FDA-Public Use
  Company Number: US-BEH-2024168295

PATIENT
  Age: 33 Year
  Sex: Female
  Weight: 122.45 kg

DRUGS (4)
  1. HAEGARDA [Suspect]
     Active Substance: HUMAN C1-ESTERASE INHIBITOR
     Indication: Hereditary angioedema
     Dosage: 3000 IU, BIW
     Route: 058
     Dates: start: 202305
  2. HAEGARDA [Suspect]
     Active Substance: HUMAN C1-ESTERASE INHIBITOR
     Indication: Prophylaxis
     Dosage: 7500 INTERNATIONAL UNIT, BIW
     Route: 058
     Dates: start: 202305
  3. HAEGARDA [Suspect]
     Active Substance: HUMAN C1-ESTERASE INHIBITOR
     Indication: Hereditary angioedema
     Dosage: 4500 IU, BIW
     Route: 058
     Dates: start: 202305
  4. HAEGARDA [Suspect]
     Active Substance: HUMAN C1-ESTERASE INHIBITOR
     Indication: Prophylaxis
     Dosage: 7500 INTERNATIONAL UNIT, BIW
     Route: 058
     Dates: start: 202305

REACTIONS (4)
  - Hereditary angioedema [Recovered/Resolved]
  - Weight decreased [Unknown]
  - Product dose omission issue [Unknown]
  - Intentional product use issue [Unknown]
